FAERS Safety Report 4476780-6 (Version None)
Quarter: 2004Q4

REPORT INFORMATION
  Report Type: 
  Country: None (occurrence: None)
  Receive Date: 20041013
  Receipt Date: 20040928
  Transmission Date: 20050328
  Serious: Yes (Hospitalization)
  Sender: FDA-Public Use
  Company Number: 2004-BP-07809BP

PATIENT
  Age: 76 Year
  Sex: Male

DRUGS (6)
  1. SPIRIVA [Suspect]
     Indication: CHRONIC OBSTRUCTIVE AIRWAYS DISEASE
     Dosage: 18 MCG (18 MCG), IH
     Route: 055
     Dates: start: 20040801, end: 20040903
  2. CIPROFLOXACIN [Concomitant]
  3. ACETYLSALICYLIC ACID SRT [Concomitant]
  4. VERAPAMIL [Concomitant]
  5. DOXAZOSIN (DOXAZOSIN) [Concomitant]
  6. ADVAIR (SERETIDE MITE) [Concomitant]

REACTIONS (8)
  - ASTHENIA [None]
  - CEREBRAL THROMBOSIS [None]
  - MENTAL STATUS CHANGES [None]
  - PERSONALITY CHANGE [None]
  - POLLAKIURIA [None]
  - SPEECH DISORDER [None]
  - SUBDURAL HAEMATOMA [None]
  - VISION BLURRED [None]
